FAERS Safety Report 13271673 (Version 3)
Quarter: 2020Q2

REPORT INFORMATION
  Report Type: Report from Study
  Country: US (occurrence: US)
  Receive Date: 20170227
  Receipt Date: 20200508
  Transmission Date: 20200713
  Serious: Yes (Death, Hospitalization, Other)
  Sender: FDA-Public Use
  Company Number: US-ACADIA PHARMACEUTICALS INC.-ACA-2017-002322

PATIENT
  Age: 78 Year
  Sex: Male

DRUGS (3)
  1. NUPLAZID [Suspect]
     Active Substance: PIMAVANSERIN TARTRATE
     Indication: PARKINSON^S DISEASE PSYCHOSIS
     Dosage: 51 MG, QD
     Route: 048
     Dates: start: 20161109
  2. NUPLAZID [Suspect]
     Active Substance: PIMAVANSERIN TARTRATE
     Indication: PARKINSON^S DISEASE
     Dosage: 20 MILLIGRAM, QD + 34MG ONCE DAILY
     Route: 048
     Dates: start: 201905
  3. NUPLAZID [Suspect]
     Active Substance: PIMAVANSERIN TARTRATE
     Indication: PARKINSON^S DISEASE
     Dosage: 34 MILLIGRAM, QD + 20MG ONCE DAILY
     Route: 048
     Dates: start: 201905

REACTIONS (5)
  - Nonspecific reaction [Not Recovered/Not Resolved]
  - Incorrect dose administered [Unknown]
  - Death [Fatal]
  - Product prescribing error [Unknown]
  - Overdose [Unknown]

NARRATIVE: CASE EVENT DATE: 20161109
